FAERS Safety Report 15417697 (Version 1)
Quarter: 2018Q3

REPORT INFORMATION
  Report Type: Spontaneous
  Country: US (occurrence: US)
  Receive Date: 20180924
  Receipt Date: 20180924
  Transmission Date: 20181010
  Serious: Yes (Death, Hospitalization)
  Sender: FDA-Public Use
  Company Number: US-BAYER-2018-002289

PATIENT
  Age: 42 Year
  Sex: Male

DRUGS (5)
  1. XARELTO [Suspect]
     Active Substance: RIVAROXABAN
     Indication: THROMBOSIS PROPHYLAXIS
  2. COUMADIN [Suspect]
     Active Substance: WARFARIN SODIUM
     Indication: DEEP VEIN THROMBOSIS
     Dosage: UNK
     Route: 048
  3. BAYER ASPIRIN [Suspect]
     Active Substance: ASPIRIN
     Indication: PRODUCT USED FOR UNKNOWN INDICATION
     Dosage: UNK
     Route: 048
  4. XARELTO [Suspect]
     Active Substance: RIVAROXABAN
     Indication: THROMBOSIS PROPHYLAXIS
     Dosage: UNK
     Route: 048
     Dates: start: 20150101, end: 20160102
  5. LOVENOX [Suspect]
     Active Substance: ENOXAPARIN SODIUM
     Indication: DEEP VEIN THROMBOSIS
     Dosage: UNK
     Route: 048

REACTIONS (3)
  - Thrombocytopenia [Recovered/Resolved]
  - Myocardial infarction [Unknown]
  - Internal haemorrhage [Unknown]

NARRATIVE: CASE EVENT DATE: 201510
